FAERS Safety Report 23236771 (Version 1)
Quarter: 2023Q4

REPORT INFORMATION
  Report Type: Spontaneous
  Country: ES (occurrence: ES)
  Receive Date: 20231128
  Receipt Date: 20231128
  Transmission Date: 20240110
  Serious: Yes (Hospitalization)
  Sender: FDA-Public Use
  Company Number: ES-JNJFOC-20231140710

PATIENT
  Age: 68 Year
  Sex: Male

DRUGS (5)
  1. LANREOTIDE ACETATE [Suspect]
     Active Substance: LANREOTIDE ACETATE
     Indication: Product used for unknown indication
     Route: 065
  2. PREDNISONE [Suspect]
     Active Substance: PREDNISONE
     Indication: Hormone-dependent prostate cancer
     Route: 065
     Dates: start: 201802
  3. PACLITAXEL [Suspect]
     Active Substance: PACLITAXEL
     Indication: Necrotising colitis
     Route: 065
  4. CARBOPLATIN [Suspect]
     Active Substance: CARBOPLATIN
     Indication: Necrotising colitis
     Route: 065
  5. ZYTIGA [Suspect]
     Active Substance: ABIRATERONE ACETATE
     Indication: Hormone-dependent prostate cancer
     Route: 065
     Dates: start: 201802

REACTIONS (2)
  - Metabolic alkalosis [Unknown]
  - Hypokalaemia [Unknown]
